FAERS Safety Report 24911392 (Version 1)
Quarter: 2025Q1

REPORT INFORMATION
  Report Type: Spontaneous
  Country: US (occurrence: US)
  Receive Date: 20250131
  Receipt Date: 20250131
  Transmission Date: 20250409
  Serious: Yes (Hospitalization)
  Sender: JOHNSON AND JOHNSON
  Company Number: US-JNJFOC-20250184447

PATIENT
  Age: 70 Year
  Sex: Female

DRUGS (2)
  1. REMICADE [Suspect]
     Active Substance: INFLIXIMAB
     Indication: Immune-mediated enterocolitis
     Route: 041
     Dates: start: 202501
  2. REMICADE [Suspect]
     Active Substance: INFLIXIMAB
     Indication: Graft versus host disease

REACTIONS (6)
  - Malnutrition [Unknown]
  - Cytomegalovirus viraemia [Unknown]
  - Oesophageal candidiasis [Unknown]
  - Weight decreased [Unknown]
  - Drug ineffective [Unknown]
  - Off label use [Unknown]
